FAERS Safety Report 8030474-9 (Version None)
Quarter: 2012Q1

REPORT INFORMATION
  Report Type: 
  Country: None (occurrence: None)
  Receive Date: 20120109
  Receipt Date: 20120103
  Transmission Date: 20120608
  Serious: Yes (Other)
  Sender: FDA-Public Use
  Company Number: US-BAYER-200940311NA

PATIENT
  Age: 53 Year
  Sex: Female
  Weight: 70.5 kg

DRUGS (22)
  1. COZAAR [Concomitant]
     Dosage: UNK
     Dates: end: 20070723
  2. DOBUTAMINE HCL [Concomitant]
     Dosage: PRIOR TO SURGICAL INTERVENTION
  3. CARDIOPLEGIA [Concomitant]
     Dosage: 4100 ML, UNK
     Route: 042
     Dates: start: 19940624
  4. TRASYLOL [Suspect]
     Indication: MYOCARDIAC ABSCESS
     Dosage: 200 ML PUMP PRIME
     Dates: start: 19940624
  5. PENICILLIN [Concomitant]
     Dosage: 3000000 U, Q4H
     Route: 042
  6. DOPAMINE HCL [Concomitant]
     Dosage: PRIOR TO SURGICAL INTERVENTION
  7. DOPAMINE HCL [Concomitant]
     Dosage: UNK
     Route: 042
     Dates: start: 19940624
  8. FRESH FROZEN PLASMA [Concomitant]
     Dosage: 4 U, UNK
     Dates: start: 19940721
  9. GENTAMICIN [Concomitant]
     Dosage: PRIOR TO SURGICAL INTERVENTION
  10. PROTAMINE SULFATE [Concomitant]
     Dosage: UNK
     Route: 042
     Dates: start: 19940624
  11. NAFCILLIN [Concomitant]
     Dosage: PRIOR TO SURGICAL INTERVENTION
  12. VANCOMYCIN [Concomitant]
     Dosage: PRIOR TO SURGICAL INTERVENTION
  13. RED BLOOD CELLS [Concomitant]
     Dosage: 4 U, UNK
     Dates: start: 19940721
  14. ZESTORETIC [Concomitant]
     Dosage: UNK
     Dates: end: 20070723
  15. LIDOCAINE [Concomitant]
     Dosage: UNK
     Route: 042
     Dates: start: 19940624
  16. PLATELETS [Concomitant]
     Dosage: 3 PACKS
     Dates: start: 19940724
  17. HEPARIN [Concomitant]
     Dosage: UNK
     Route: 042
     Dates: start: 19940624
  18. MANNITOL [Concomitant]
     Dosage: 25 G, UNK
     Route: 042
     Dates: start: 19940624
  19. VERSED [Concomitant]
     Dosage: UNK
     Route: 042
     Dates: start: 19940624
  20. TRASYLOL [Suspect]
     Indication: AORTIC VALVE REPLACEMENT
     Dosage: 1ML TEST DOSE, 50ML/HR
     Route: 042
     Dates: start: 19940724
  21. DOBUTAMINE HCL [Concomitant]
     Dosage: UNK
     Route: 042
     Dates: start: 19940624
  22. CEFAZOLIN [Concomitant]
     Dosage: 1 G, UNK
     Route: 042
     Dates: start: 19940624

REACTIONS (12)
  - RENAL INJURY [None]
  - ANXIETY [None]
  - UNEVALUABLE EVENT [None]
  - EMOTIONAL DISTRESS [None]
  - PAIN [None]
  - INJURY [None]
  - RENAL IMPAIRMENT [None]
  - STRESS [None]
  - ANHEDONIA [None]
  - PSYCHOLOGICAL TRAUMA [None]
  - RENAL FAILURE [None]
  - FEAR [None]
